FAERS Safety Report 19899066 (Version 2)
Quarter: 2021Q4

REPORT INFORMATION
  Report Type: Spontaneous
  Country: US (occurrence: US)
  Receive Date: 20210929
  Receipt Date: 20211018
  Transmission Date: 20220303
  Serious: Yes (Other)
  Sender: FDA-Public Use
  Company Number: PHEH2019US027863

PATIENT
  Sex: Female
  Weight: 80.73 kg

DRUGS (1)
  1. AMITRIPTYLINE HYDROCHLORIDE [Suspect]
     Active Substance: AMITRIPTYLINE HYDROCHLORIDE
     Indication: Trigeminal neuralgia
     Dosage: 10 MG, QD
     Route: 048
     Dates: start: 20190624

REACTIONS (2)
  - Skin discolouration [Unknown]
  - Hair colour changes [Unknown]
